FAERS Safety Report 6570936-4 (Version None)
Quarter: 2010Q1

REPORT INFORMATION
  Report Type: 
  Country: None (occurrence: None)
  Receive Date: 20100203
  Receipt Date: 20100203
  Transmission Date: 20100710
  Serious: Yes (Life-Threatening, Hospitalization)
  Sender: FDA-Public Use
  Company Number: None

PATIENT
  Age: 63 Year
  Sex: Male
  Weight: 115 kg

DRUGS (2)
  1. MIDAZOLAM HCL [Suspect]
     Indication: SURGERY
     Dosage: ONCE IV
     Route: 042
     Dates: start: 20100129, end: 20100129
  2. FENTANYL-100 [Suspect]
     Dosage: IV
     Route: 042

REACTIONS (2)
  - HYPOVENTILATION [None]
  - OXYGEN SATURATION DECREASED [None]
